FAERS Safety Report 8828003 (Version 1)
Quarter: 2012Q4

REPORT INFORMATION
  Report Type: 
  Country: US (occurrence: US)
  Receive Date: 20121008
  Receipt Date: 20121008
  Transmission Date: 20130627
  Serious: Yes (Hospitalization)
  Sender: FDA-Public Use
  Company Number: US-009507513-1210USA001206

PATIENT
  Sex: Female

DRUGS (1)
  1. IMPLANON [Suspect]
     Indication: CONTRACEPTION
     Dosage: 68 mg, UNK
     Route: 059
     Dates: start: 201112, end: 2012

REACTIONS (2)
  - Mania [Recovering/Resolving]
  - Depression [Recovering/Resolving]
